FAERS Safety Report 5877485-7 (Version None)
Quarter: 2008Q3

REPORT INFORMATION
  Report Type: 
  Country: None (occurrence: None)
  Receive Date: 20080911
  Receipt Date: 20080905
  Transmission Date: 20090109
  Serious: Yes (Other)
  Sender: FDA-Public Use
  Company Number: GB-WYE-G02116808

PATIENT
  Age: 58 Year
  Sex: Female

DRUGS (5)
  1. EFFEXOR XR [Suspect]
     Indication: MAJOR DEPRESSION
     Dosage: 75 MG, FREQUENCY UNKNOWN
  2. EFFEXOR XR [Suspect]
     Dosage: 225 MG FREQUENCY UNKNOWN
  3. EFFEXOR XR [Suspect]
     Dosage: 375 MG FREQUENCY UNKNOWN
  4. EFFEXOR XR [Suspect]
     Dosage: 300 MG FREQUENCY UNKNOWN
  5. MIRTAZAPINE [Concomitant]
     Dosage: UNKNOWN

REACTIONS (4)
  - CONVULSION [None]
  - DRUG INEFFECTIVE [None]
  - DRUG WITHDRAWAL SYNDROME [None]
  - DYSARTHRIA [None]
